FAERS Safety Report 12896763 (Version 1)
Quarter: 2016Q4

REPORT INFORMATION
  Report Type: Spontaneous
  Country: AU (occurrence: AU)
  Receive Date: 20161031
  Receipt Date: 20161031
  Transmission Date: 20170207
  Serious: Yes (Other)
  Sender: FDA-Public Use
  Company Number: AU-GLAXOSMITHKLINE-AU2016158851

PATIENT
  Age: 70 Year
  Sex: Female

DRUGS (15)
  1. NORFLOXACIN [Concomitant]
     Active Substance: NORFLOXACIN
  2. METFORMIN [Concomitant]
     Active Substance: METFORMIN HYDROCHLORIDE
  3. LANTUS [Concomitant]
     Active Substance: INSULIN GLARGINE
  4. ESCITALOPRAM [Interacting]
     Active Substance: ESCITALOPRAM OXALATE
  5. BUPROPION. [Suspect]
     Active Substance: BUPROPION
     Dosage: 75 MG PO MANE
  6. DOTHIEPIN HYDROCHLORIDE [Interacting]
     Active Substance: DOTHIEPIN HYDROCHLORIDE
  7. GLIPIZIDE. [Concomitant]
     Active Substance: GLIPIZIDE
  8. OESTRADIOL [Concomitant]
     Active Substance: ESTROGENS
  9. QUETIAPINE. [Concomitant]
     Active Substance: QUETIAPINE
     Dosage: 400 MG AT NIGHT
  10. DOTHIEPIN HYDROCHLORIDE [Interacting]
     Active Substance: DOTHIEPIN HYDROCHLORIDE
  11. RAMIPRIL. [Suspect]
     Active Substance: RAMIPRIL
  12. DOTHIEPIN HYDROCHLORIDE [Interacting]
     Active Substance: DOTHIEPIN HYDROCHLORIDE
  13. LAMOTRIGINE. [Concomitant]
     Active Substance: LAMOTRIGINE
  14. ATORVASTATIN [Concomitant]
     Active Substance: ATORVASTATIN
  15. ACETYLSALICYLIC ACID [Concomitant]
     Active Substance: ASPIRIN

REACTIONS (4)
  - Hyponatraemia [Recovered/Resolved]
  - Inappropriate antidiuretic hormone secretion [Recovered/Resolved]
  - Toxicity to various agents [Recovered/Resolved]
  - Drug interaction [Recovered/Resolved]
